FAERS Safety Report 10782755 (Version 1)
Quarter: 2015Q1

REPORT INFORMATION
  Report Type: Spontaneous
  Country: US (occurrence: None)
  Receive Date: 20150209
  Receipt Date: 20150209
  Transmission Date: 20150721
  Serious: Yes (Hospitalization)
  Sender: FDA-Public Use
  Company Number: None

PATIENT
  Age: 57 Year
  Sex: Male
  Weight: 128.2 kg

DRUGS (8)
  1. CARISOPRODOL (SOMA) [Concomitant]
  2. ESCITALOPRAM (LEXAPRO) [Concomitant]
  3. OXYMORPHONE (OPANA ER) [Concomitant]
  4. DEXTROAMPHETAMINE-AMPHETAMINE (AMPHETAMINE-DEXTROAMPHETAMINE) [Concomitant]
  5. HARVONI [Suspect]
     Active Substance: LEDIPASVIR\SOFOSBUVIR
     Indication: HEPATITIS C
     Route: 048
     Dates: start: 20141114
  6. XANAX [Concomitant]
     Active Substance: ALPRAZOLAM
  7. OXYCODONE (ROXICODONE) [Concomitant]
  8. ZOLDIPEM (AMBIEN) [Concomitant]

REACTIONS (3)
  - Metabolic acidosis [None]
  - Drug withdrawal convulsions [None]
  - Drug dose omission [None]

NARRATIVE: CASE EVENT DATE: 20150126
